FAERS Safety Report 24686148 (Version 1)
Quarter: 2024Q4

REPORT INFORMATION
  Report Type: Spontaneous
  Country: US (occurrence: None)
  Receive Date: 20241127
  Receipt Date: 20241127
  Transmission Date: 20250115
  Serious: No
  Sender: Public
  Company Number: None

PATIENT
  Age: 28 Year
  Sex: Female
  Weight: 50.4 kg

DRUGS (1)
  1. TRI-LO-MILI [Suspect]
     Active Substance: ETHINYL ESTRADIOL\NORGESTIMATE
     Indication: Contraception
     Dosage: 1 TABLET DAILY ORAL ?
     Route: 048
     Dates: start: 20200306

REACTIONS (7)
  - Flatulence [None]
  - Abdominal pain upper [None]
  - Fatigue [None]
  - Intermenstrual bleeding [None]
  - Amenorrhoea [None]
  - Breast discharge [None]
  - Abdominal distension [None]

NARRATIVE: CASE EVENT DATE: 20240712
